FAERS Safety Report 5346471-8 (Version None)
Quarter: 2007Q2

REPORT INFORMATION
  Report Type: 
  Country: None (occurrence: None)
  Receive Date: 20070605
  Receipt Date: 20070525
  Transmission Date: 20071010
  Serious: Yes (Other)
  Sender: FDA-Public Use
  Company Number: FR-PFIZER INC-2007042872

PATIENT
  Sex: Male

DRUGS (2)
  1. CHAMPIX [Suspect]
     Indication: SMOKING CESSATION THERAPY
     Dates: start: 20070201, end: 20070301
  2. DEPAKOTE [Concomitant]

REACTIONS (5)
  - AGITATION [None]
  - DELIRIUM [None]
  - DEPRESSION [None]
  - HYPOMANIA [None]
  - INSOMNIA [None]
